FAERS Safety Report 17698956 (Version 5)
Quarter: 2021Q4

REPORT INFORMATION
  Report Type: Report from Study
  Country: CH (occurrence: None)
  Receive Date: 20200423
  Receipt Date: 20211125
  Transmission Date: 20220303
  Serious: Yes (Hospitalization)
  Sender: FDA-Public Use
  Company Number: SZ-ROCHE-2550971

PATIENT
  Age: 71 Year
  Sex: Female
  Weight: 58.6 kg

DRUGS (7)
  1. ATEZOLIZUMAB [Suspect]
     Active Substance: ATEZOLIZUMAB
     Indication: Oesophageal adenocarcinoma
     Dosage: DATE OF LAST DOSE OF ATEZOLIZUMAB (840 MG) PRIOR TO SAE ONSET: 01/FEB/2020?10/FEB/2020, LAST DOSE GI
     Route: 041
  2. OXALIPLATIN [Suspect]
     Active Substance: OXALIPLATIN
     Indication: Oesophageal adenocarcinoma
     Dosage: DATE OF LAST DOSE OF OXALIPLATIN (130 MG) PRIOR TO SAE ONSET: 01/FEB/2020?ON DAY 1?10/FEB/2020, LAST
     Route: 042
  3. DOCETAXEL [Suspect]
     Active Substance: DOCETAXEL
     Indication: Oesophageal adenocarcinoma
     Dosage: DATE OF LAST DOSE OF DOCETAXEL (75 MG) PRIOR TO SAE ONSET: 01/ FEB/2020?10/FEB/2020, LAST DOSE GIVEN
     Route: 042
  4. LEUCOVORIN [Suspect]
     Active Substance: LEUCOVORIN
     Indication: Oesophageal adenocarcinoma
     Dosage: DATE OF LAST DOSE OF LEUCOVORIN (300 MG) PRIOR TO SAE ONSET: 01/FEB/2020?10/FEB/2020, LAST DOSE GIVE
     Route: 042
  5. FLUOROURACIL [Suspect]
     Active Substance: FLUOROURACIL
     Indication: Oesophageal adenocarcinoma
     Dosage: DATE OF LAST DOSE OF FLUOROURACIL (3400 MG) PRIOR TO SAE ONSET: 01/FEB/2020?ON DAY 1 IN ONCE IN 2 WE
     Route: 042
  6. LOPERAMIDE [Concomitant]
     Active Substance: LOPERAMIDE
  7. VANCOMYCIN [Concomitant]
     Active Substance: VANCOMYCIN
     Dates: start: 20200311, end: 20200320

REACTIONS (2)
  - Gastrointestinal disorder [Recovered/Resolved]
  - Diarrhoea [Recovered/Resolved]

NARRATIVE: CASE EVENT DATE: 20200213
